FAERS Safety Report 7472461-5 (Version None)
Quarter: 2011Q2

REPORT INFORMATION
  Report Type: 
  Country: None (occurrence: None)
  Receive Date: 20110511
  Receipt Date: 20110406
  Transmission Date: 20111010
  Serious: Yes (Hospitalization, Other)
  Sender: FDA-Public Use
  Company Number: US-BAYER-201031613NA

PATIENT
  Age: 19 Year
  Sex: Female
  Weight: 99.773 kg

DRUGS (7)
  1. YASMIN [Suspect]
     Indication: POLYCYSTIC OVARIES
  2. NIASPAN [Concomitant]
     Indication: HYPERTRIGLYCERIDAEMIA
  3. ZOCOR [Concomitant]
     Indication: HYPERTRIGLYCERIDAEMIA
  4. YASMIN [Suspect]
     Indication: MENSTRUATION IRREGULAR
  5. TRICOR [Concomitant]
     Indication: HYPERTRIGLYCERIDAEMIA
  6. YASMIN [Suspect]
     Indication: CONTRACEPTION
     Dosage: UNK
     Route: 048
     Dates: start: 20030101, end: 20080101
  7. SYNTHROID [Concomitant]
     Dosage: UNK
     Dates: start: 20070101

REACTIONS (15)
  - IMPAIRED GASTRIC EMPTYING [None]
  - OBSTRUCTION GASTRIC [None]
  - GASTROINTESTINAL INJURY [None]
  - BLOOD TRIGLYCERIDES INCREASED [None]
  - HEPATIC CONGESTION [None]
  - BILE DUCT OBSTRUCTION [None]
  - GALLBLADDER DISORDER [None]
  - LIVER INJURY [None]
  - HEPATITIS [None]
  - CHOLELITHIASIS [None]
  - PANCREATITIS [None]
  - GASTRITIS [None]
  - PAIN [None]
  - MALNUTRITION [None]
  - WEIGHT DECREASED [None]
